FAERS Safety Report 19903652 (Version 2)
Quarter: 2022Q3

REPORT INFORMATION
  Report Type: Spontaneous
  Country: US (occurrence: US)
  Receive Date: 20211001
  Receipt Date: 20220928
  Transmission Date: 20221027
  Serious: Yes (Other)
  Sender: FDA-Public Use
  Company Number: US-SA-SAC20210928001046

PATIENT
  Age: 49 Year
  Sex: Female

DRUGS (1)
  1. ZANTAC [Suspect]
     Active Substance: RANITIDINE HYDROCHLORIDE
     Indication: Dyspepsia
     Dosage: 300 MG, QD
     Dates: start: 198505, end: 202003

REACTIONS (3)
  - Hepatic cancer [Unknown]
  - Gastrointestinal carcinoma [Not Recovered/Not Resolved]
  - Small intestine carcinoma [Unknown]

NARRATIVE: CASE EVENT DATE: 19880101
